FAERS Safety Report 8632443 (Version 2)
Quarter: 2012Q4

REPORT INFORMATION
  Report Type: 
  Country: US (occurrence: US)
  Receive Date: 20120625
  Receipt Date: 20121102
  Transmission Date: 20130627
  Serious: Yes (Hospitalization)
  Sender: FDA-Public Use
  Company Number: US-BAYER-2012-060954

PATIENT
  Age: 21 Year
  Sex: Female
  Weight: 99.77 kg

DRUGS (10)
  1. YASMIN [Suspect]
     Indication: CONTRACEPTION
     Dosage: UNK
     Dates: start: 2006, end: 20080714
  2. OCELLA [Suspect]
     Indication: CONTRACEPTION
     Dosage: UNK
     Dates: start: 20080715, end: 20080804
  3. YAZ [Suspect]
  4. MINOCYCLINE [Concomitant]
     Dosage: 100 mg, UNK
  5. TRIAMCINOLONE [Concomitant]
     Dosage: 0.1%
  6. IBUPROFEN [Concomitant]
  7. KETOROLAC [Concomitant]
  8. ONDANSETRON [Concomitant]
  9. FENTANYL [Concomitant]
  10. MORPHINE [Concomitant]

REACTIONS (7)
  - Pulmonary embolism [None]
  - Pulmonary infarction [None]
  - Injury [None]
  - Pain [None]
  - Pain [None]
  - Dyspnoea [None]
  - Back pain [None]
